FAERS Safety Report 26057884 (Version 1)
Quarter: 2025Q4

REPORT INFORMATION
  Report Type: Spontaneous
  Country: US (occurrence: US)
  Receive Date: 20251118
  Receipt Date: 20251118
  Transmission Date: 20260118
  Serious: No
  Sender: ALVOGEN
  Company Number: US-ALVOGEN-2025096497

PATIENT
  Sex: Female

DRUGS (2)
  1. TERIPARATIDE [Suspect]
     Active Substance: TERIPARATIDE
     Indication: Osteoporosis
     Dosage: USED ONE SINCE AUGUST, DAILY
     Route: 058
     Dates: start: 202408
  2. TERIPARATIDE [Suspect]
     Active Substance: TERIPARATIDE
     Indication: Osteoporosis
     Dosage: EXPIRATION DATE: OCT-2025, DAILY, RECEIVED ON 19-FEB-2025?SN: 018234117847?GTIN: 00347781652890
     Route: 058
     Dates: start: 2025

REACTIONS (7)
  - Myalgia [Unknown]
  - Device malfunction [Unknown]
  - Device operational issue [Unknown]
  - Device physical property issue [Unknown]
  - Wrong technique in product usage process [Unknown]
  - Product dose omission issue [Unknown]
  - Product use issue [Unknown]

NARRATIVE: CASE EVENT DATE: 20250101
